FAERS Safety Report 4824562-5 (Version None)
Quarter: 2005Q4

REPORT INFORMATION
  Report Type: 
  Country: None (occurrence: None)
  Receive Date: 20051108
  Receipt Date: 20051021
  Transmission Date: 20060501
  Serious: Yes (Hospitalization, Disabling, Congenital Anomaly)
  Sender: FDA-Public Use
  Company Number: EWC051046683

PATIENT
  Age: 64 Year
  Sex: Female
  Weight: 42 kg

DRUGS (3)
  1. EVISTA [Suspect]
     Indication: OSTEOPOROSIS
     Dosage: 60 MG/1 DAY
     Dates: start: 20031112, end: 20040504
  2. SOTALOL HCL [Concomitant]
  3. PERTRANQUIL (MEPROBAMATE) [Concomitant]

REACTIONS (1)
  - CEREBROVASCULAR ACCIDENT [None]
